FAERS Safety Report 8424450-1 (Version None)
Quarter: 2012Q2

REPORT INFORMATION
  Report Type: 
  Country: None (occurrence: None)
  Receive Date: 20120610
  Receipt Date: 20120601
  Transmission Date: 20120825
  Serious: Yes (Other)
  Sender: FDA-Public Use
  Company Number: US-TEVA-341220USA

PATIENT
  Sex: Female

DRUGS (14)
  1. LORATADINE [Concomitant]
  2. FEXOFENADINE [Concomitant]
  3. LORAZEPAM [Concomitant]
  4. COPAXONE [Suspect]
     Indication: MULTIPLE SCLEROSIS
     Dosage: 20 MILLIGRAM;
     Route: 058
     Dates: start: 20120412
  5. TRIAMCINOLONE [Concomitant]
  6. GUANFACINE [Concomitant]
  7. GABAPENTIN [Concomitant]
  8. ZOLPIDEM [Concomitant]
  9. GABAPENTIN [Concomitant]
  10. TERAZOSIN HCL [Concomitant]
  11. CLONAZEPAM [Concomitant]
  12. DULOXETINE HYDROCHLORIDE [Concomitant]
  13. MONTELUKAST [Concomitant]
  14. NABUMETONE [Concomitant]

REACTIONS (2)
  - BRONCHOPNEUMONIA [None]
  - SEIZURE LIKE PHENOMENA [None]
